FAERS Safety Report 24758268 (Version 1)
Quarter: 2024Q4

REPORT INFORMATION
  Report Type: Spontaneous
  Country: US (occurrence: US)
  Receive Date: 20241220
  Receipt Date: 20241220
  Transmission Date: 20250114
  Serious: Yes (Other)
  Sender: CROWN LABORATORIES, INC.
  Company Number: US-Crown Laboratories, Inc.-2167459

PATIENT
  Sex: Female

DRUGS (1)
  1. PANOXYL [Suspect]
     Active Substance: BENZOYL PEROXIDE
     Dates: start: 20241212

REACTIONS (5)
  - Eye swelling [Unknown]
  - Application site erythema [Unknown]
  - Application site pruritus [Unknown]
  - Application site pain [Unknown]
  - Application site swelling [Unknown]

NARRATIVE: CASE EVENT DATE: 20241212
